FAERS Safety Report 7873619-3 (Version None)
Quarter: 2011Q4

REPORT INFORMATION
  Report Type: 
  Country: None (occurrence: None)
  Receive Date: 20111030
  Receipt Date: 20110506
  Transmission Date: 20120403
  Serious: No
  Sender: FDA-Public Use
  Company Number: US-AMGEN-USASP2011023585

PATIENT
  Age: 33 Year
  Sex: Female

DRUGS (2)
  1. ENBREL [Suspect]
     Indication: PSORIASIS
     Dosage: 50 MG, 2 TIMES/WK
     Dates: start: 20110215
  2. METHOTREXATE [Concomitant]
     Dosage: 1 MG, QWK
     Dates: start: 20090101

REACTIONS (3)
  - INJECTION SITE ERYTHEMA [None]
  - INJECTION SITE SWELLING [None]
  - THERAPEUTIC RESPONSE DECREASED [None]
